FAERS Safety Report 9207836 (Version 2)
Quarter: 2013Q2

REPORT INFORMATION
  Report Type: Spontaneous
  Country: JP (occurrence: JP)
  Receive Date: 20130403
  Receipt Date: 20130426
  Transmission Date: 20140414
  Serious: Yes (Other)
  Sender: FDA-Public Use
  Company Number: JP-GLAXOSMITHKLINE-B0860383A

PATIENT
  Age: 69 Year
  Sex: Female
  Weight: 57 kg

DRUGS (14)
  1. TYKERB [Suspect]
     Indication: PRODUCT USED FOR UNKNOWN INDICATION
     Route: 048
     Dates: start: 20120613, end: 20121011
  2. TYKERB [Suspect]
     Indication: PRODUCT USED FOR UNKNOWN INDICATION
     Route: 048
     Dates: start: 20121222, end: 201301
  3. TYKERB [Suspect]
     Indication: PRODUCT USED FOR UNKNOWN INDICATION
     Route: 048
     Dates: start: 201301
  4. XELODA [Concomitant]
     Route: 048
     Dates: start: 20120613, end: 20121011
  5. XELODA [Concomitant]
     Route: 048
     Dates: start: 20121222, end: 201301
  6. XELODA [Concomitant]
     Route: 048
     Dates: start: 201301
  7. AROMASIN [Concomitant]
     Route: 048
     Dates: start: 20120613, end: 20121011
  8. AROMASIN [Concomitant]
     Route: 048
     Dates: start: 20121222
  9. PACLITAXEL [Concomitant]
     Dates: start: 200901, end: 200903
  10. HERCEPTIN [Concomitant]
     Route: 042
     Dates: start: 200901
  11. HERCEPTIN [Concomitant]
     Route: 042
  12. FEMARA [Concomitant]
     Route: 048
     Dates: start: 200903, end: 200910
  13. TS-1 [Concomitant]
     Route: 048
     Dates: start: 200910
  14. NOLVADEX [Concomitant]
     Route: 048
     Dates: start: 201103

REACTIONS (2)
  - Dermatitis acneiform [Recovered/Resolved]
  - Liver disorder [Recovered/Resolved]
